FAERS Safety Report 4912863-1 (Version None)
Quarter: 2006Q1

REPORT INFORMATION
  Report Type: 
  Country: None (occurrence: None)
  Receive Date: 20060215
  Receipt Date: 20060209
  Transmission Date: 20060701
  Serious: Yes (Death, Congenital Anomaly)
  Sender: FDA-Public Use
  Company Number: PHBS2006BR02352

PATIENT
  Age: 3 Day

DRUGS (1)
  1. TEGRETOL [Suspect]
     Route: 064

REACTIONS (2)
  - DRUG EXPOSURE DURING PREGNANCY [None]
  - HEREDITARY SPASTIC PARAPLEGIA [None]
